FAERS Safety Report 24849534 (Version 1)
Quarter: 2025Q1

REPORT INFORMATION
  Report Type: Spontaneous
  Country: US (occurrence: US)
  Receive Date: 20250116
  Receipt Date: 20250116
  Transmission Date: 20250409
  Serious: No
  Sender: SK LIFE SCIENCE
  Company Number: US-SK LIFE SCIENCE, INC-SKPVG-2023-001695

PATIENT

DRUGS (10)
  1. XCOPRI [Suspect]
     Active Substance: CENOBAMATE
     Indication: Seizure
     Dosage: DAILY, 12.5MG FOR 14 DAYS THEN 25MG DAILY FOR ANOTHER 14 DAYS
     Route: 048
  2. XCOPRI [Suspect]
     Active Substance: CENOBAMATE
     Dosage: DAILY, 12.5MG FOR 14 DAYS THEN 25MG DAILY FOR ANOTHER 14 DAYS
     Route: 048
     Dates: end: 20231223
  3. CARBAMAZEPINE [Concomitant]
     Active Substance: CARBAMAZEPINE
     Indication: Product used for unknown indication
     Dosage: 200 MILLIGRAM, BID, TWO IN THE MORNING, AND TWO NIGHT
     Route: 065
  4. PHENYTOIN SODIUM [Concomitant]
     Active Substance: PHENYTOIN SODIUM
     Indication: Product used for unknown indication
     Dosage: 100 MILLIGRAM, BID, ONE IN THE MORNING, AND ONE AT NIGHT
     Route: 065
  5. AMLODIPINE BESYLATE [Concomitant]
     Active Substance: AMLODIPINE BESYLATE
     Indication: Product used for unknown indication
     Dosage: 5 MILLIGRAM, QD, ONE IN THE MORNING
     Route: 065
  6. ENALAPRIL [Concomitant]
     Active Substance: ENALAPRIL
     Indication: Product used for unknown indication
     Dosage: 10 MILLIGRAM, QD, ONE PER MORNING
     Route: 065
  7. VITAMIN D3 [Concomitant]
     Active Substance: CHOLECALCIFEROL
     Indication: Product used for unknown indication
     Dosage: 5000 UNK, QWK
     Route: 065
  8. OSTOCALCIUM                        /01361201/ [Concomitant]
     Indication: Product used for unknown indication
     Dosage: 50 MILLIGRAM, QD ONE IN THE MORNING
     Route: 065
  9. LEVETIRACETAM [Concomitant]
     Active Substance: LEVETIRACETAM
     Indication: Product used for unknown indication
     Route: 065
  10. VIMPAT [Concomitant]
     Active Substance: LACOSAMIDE
     Indication: Product used for unknown indication
     Dosage: ONE IN MORNING AND ONE AT NIGHT
     Route: 065

REACTIONS (2)
  - COVID-19 [Recovered/Resolved]
  - Product dose omission issue [Not Recovered/Not Resolved]

NARRATIVE: CASE EVENT DATE: 20231226
